FAERS Safety Report 21063961 (Version 1)
Quarter: 2022Q3

REPORT INFORMATION
  Report Type: Spontaneous
  Country: US (occurrence: None)
  Receive Date: 20220708
  Receipt Date: 20220708
  Transmission Date: 20221027
  Serious: Yes (Death)
  Sender: FDA-Public Use
  Company Number: None

PATIENT
  Age: 69 Year
  Sex: Male

DRUGS (18)
  1. NUCALA [Suspect]
     Active Substance: MEPOLIZUMAB
     Indication: Asthma
     Dates: start: 20200219, end: 20220208
  2. ABILIFY [Concomitant]
     Active Substance: ARIPIPRAZOLE
  3. BUPROPION [Concomitant]
     Active Substance: BUPROPION
  4. CALCIUM [Concomitant]
     Active Substance: CALCIUM
  5. DIGOXIN [Concomitant]
     Active Substance: DIGOXIN
  6. DILTIAZEM [Concomitant]
     Active Substance: DILTIAZEM
  7. FOLIC ACID [Concomitant]
     Active Substance: FOLIC ACID
  8. MIRALAX [Concomitant]
     Active Substance: POLYETHYLENE GLYCOL 3350
  9. MORPHINE [Concomitant]
     Active Substance: MORPHINE
  10. OMEPRAZOLE [Concomitant]
     Active Substance: OMEPRAZOLE
  11. OXYCODONE [Concomitant]
     Active Substance: OXYCODONE
  12. PRAVASTATIN [Concomitant]
     Active Substance: PRAVASTATIN
  13. PROAIR HFA [Concomitant]
     Active Substance: ALBUTEROL SULFATE
  14. SPIRIVA [Concomitant]
     Active Substance: TIOTROPIUM BROMIDE MONOHYDRATE
  15. SYMBICORT [Concomitant]
     Active Substance: BUDESONIDE\FORMOTEROL FUMARATE DIHYDRATE
  16. XARELTO [Concomitant]
     Active Substance: RIVAROXABAN
  17. ZETIA [Concomitant]
     Active Substance: EZETIMIBE
  18. FUROSEMIDE [Concomitant]
     Active Substance: FUROSEMIDE

REACTIONS (1)
  - Death [None]

NARRATIVE: CASE EVENT DATE: 20220613
